FAERS Safety Report 8503187 (Version 3)
Quarter: 2012Q4

REPORT INFORMATION
  Report Type: 
  Country: US (occurrence: US)
  Receive Date: 20120411
  Receipt Date: 20120917
  Transmission Date: 20130627
  Serious: Yes (Hospitalization)
  Sender: FDA-Public Use
  Company Number: US-BAYER-2012-033310

PATIENT
  Age: 28 Year
  Sex: Female
  Weight: 72.8 kg

DRUGS (1)
  1. YASMIN [Suspect]
     Indication: CONTRACEPTION
     Dosage: UNK
     Dates: start: 2005, end: 20110404

REACTIONS (3)
  - Ischaemic stroke [None]
  - Pain [None]
  - Anhedonia [None]
